FAERS Safety Report 10467676 (Version 3)
Quarter: 2014Q3

REPORT INFORMATION
  Report Type: Report from Study
  Country: IL (occurrence: IL)
  Receive Date: 20140922
  Receipt Date: 20140924
  Transmission Date: 20150326
  Serious: Yes (Hospitalization)
  Sender: FDA-Public Use
  Company Number: IL-JNJFOC-20140826689

PATIENT
  Age: 79 Year
  Sex: Female

DRUGS (5)
  1. MONOCORD [Concomitant]
  2. CONVERTIN [Concomitant]
  3. IBRUTINIB [Suspect]
     Active Substance: IBRUTINIB
     Indication: CHRONIC LYMPHOCYTIC LEUKAEMIA
     Route: 048
  4. NORMITEN [Concomitant]
     Active Substance: ATENOLOL
  5. ASPIRIN. [Concomitant]
     Active Substance: ASPIRIN

REACTIONS (3)
  - Dyspnoea [Unknown]
  - Pneumonia [Not Recovered/Not Resolved]
  - Mechanical ventilation [Unknown]
